FAERS Safety Report 10624864 (Version 1)
Quarter: 2014Q4

REPORT INFORMATION
  Report Type: Report from Study
  Country: ZW (occurrence: ZW)
  Receive Date: 20141204
  Receipt Date: 20141204
  Transmission Date: 20150529
  Serious: Yes (Death, Other)
  Sender: FDA-Public Use
  Company Number: ZW-BRISTOL-MYERS SQUIBB COMPANY-21640198

PATIENT
  Age: 45 Year
  Sex: Male
  Weight: 41.8 kg

DRUGS (4)
  1. ISONIAZID + RIFAMPICIN [Suspect]
     Active Substance: ISONIAZID\RIFAMPIN
     Dosage: LAST DOSE-20JAN2014
     Route: 048
     Dates: start: 20130910
  2. EMTRICITABINE [Suspect]
     Active Substance: EMTRICITABINE
     Dosage: LAST DOSE-20JAN2014
     Route: 048
     Dates: start: 20130910
  3. EFAVIRENZ [Suspect]
     Active Substance: EFAVIRENZ
     Dosage: LAST DOSE-20JAN2014
     Route: 048
     Dates: start: 20130910
  4. TENOFOVIR DISOPROXIL FUMARATE [Suspect]
     Active Substance: TENOFOVIR DISOPROXIL FUMARATE
     Dosage: LAST DOSE-20JAN2014
     Route: 048
     Dates: start: 20130910

REACTIONS (5)
  - Death [Fatal]
  - Weight decreased [Not Recovered/Not Resolved]
  - Dehydration [Unknown]
  - Diarrhoea [Not Recovered/Not Resolved]
  - Decreased appetite [Not Recovered/Not Resolved]

NARRATIVE: CASE EVENT DATE: 20131005
